FAERS Safety Report 12651838 (Version 1)
Quarter: 2016Q3

REPORT INFORMATION
  Report Type: Spontaneous
  Country: US (occurrence: US)
  Receive Date: 20160815
  Receipt Date: 20160815
  Transmission Date: 20161109
  Serious: Yes (Other)
  Sender: FDA-Public Use
  Company Number: US-TEVA-683687USA

PATIENT
  Age: 51 Year
  Sex: Female

DRUGS (3)
  1. TIZANIDINE. [Concomitant]
     Active Substance: TIZANIDINE
  2. BACLOFEN. [Concomitant]
     Active Substance: BACLOFEN
  3. COPAXONE [Suspect]
     Active Substance: GLATIRAMER ACETATE
     Indication: MULTIPLE SCLEROSIS
     Route: 058
     Dates: start: 20150820

REACTIONS (1)
  - Multiple sclerosis relapse [Not Recovered/Not Resolved]

NARRATIVE: CASE EVENT DATE: 201608
